FAERS Safety Report 17172869 (Version 1)
Quarter: 2019Q4

REPORT INFORMATION
  Report Type: Spontaneous
  Country: TR (occurrence: TR)
  Receive Date: 20191218
  Receipt Date: 20191218
  Transmission Date: 20200122
  Serious: Yes (Hospitalization)
  Sender: FDA-Public Use
  Company Number: TR-TEVA-2019-TR-1153240

PATIENT
  Age: 17 Year
  Sex: Female

DRUGS (6)
  1. BIPERIDEN [Suspect]
     Active Substance: BIPERIDEN
     Indication: SUBSTANCE-INDUCED PSYCHOTIC DISORDER
     Dosage: 2 MILLIGRAM DAILY;
     Route: 065
  2. RISPERIDONE. [Suspect]
     Active Substance: RISPERIDONE
     Indication: SUBSTANCE-INDUCED PSYCHOTIC DISORDER
     Dosage: 4 MILLIGRAM DAILY;
     Route: 048
  3. MODAFINIL. [Suspect]
     Active Substance: MODAFINIL
     Indication: HYPERSOMNIA
     Dosage: 100 MILLIGRAM DAILY; COMMITTED SUICIDE WITH 12 BLISTER PACKS OF 10 TABLETS EACH CONTAINING 100 MG MO
     Route: 048
  4. MODAFINIL. [Suspect]
     Active Substance: MODAFINIL
     Dosage: 200 MILLIGRAM DAILY;
     Route: 048
  5. MODAFINIL. [Suspect]
     Active Substance: MODAFINIL
     Dosage: 12 GRAM DAILY; 12 BLISTER PACKS OF 10 TABLETS EACH CONTAINING 100 MG MODAFINIL FOR SUICIDE ATTEMPT
     Route: 048
  6. HALOPERIDOL DECANOATE. [Suspect]
     Active Substance: HALOPERIDOL DECANOATE
     Indication: SUBSTANCE-INDUCED PSYCHOTIC DISORDER
     Dosage: 50 MG/ML GLUTEAL INJECTION ONCE IN A MONTH
     Route: 030

REACTIONS (7)
  - Toxicity to various agents [Recovered/Resolved]
  - Toxic encephalopathy [Recovered/Resolved]
  - Akathisia [Recovered/Resolved]
  - Substance-induced psychotic disorder [Recovered/Resolved]
  - Intentional overdose [Recovered/Resolved]
  - Therapy non-responder [Unknown]
  - Suicide attempt [Recovered/Resolved]
